FAERS Safety Report 8172566-X (Version None)
Quarter: 2012Q1

REPORT INFORMATION
  Report Type: 
  Country: None (occurrence: None)
  Receive Date: 20120229
  Receipt Date: 20120224
  Transmission Date: 20120608
  Serious: Yes (Other)
  Sender: FDA-Public Use
  Company Number: US-PFIZER INC-2012017444

PATIENT
  Sex: Female
  Weight: 68.027 kg

DRUGS (16)
  1. NORVASC [Concomitant]
     Indication: HYPERTENSION
     Dosage: UNK
  2. SYNTHROID [Concomitant]
     Indication: HYPOTHYROIDISM
     Dosage: UNK
  3. ADVAIR DISKUS 100/50 [Concomitant]
     Dosage: UNK
  4. LAMICTAL [Concomitant]
     Dosage: UNK
  5. ATIVAN [Concomitant]
     Dosage: UNK
  6. CHANTIX [Suspect]
     Dosage: UNK
     Dates: start: 20120102
  7. CHANTIX [Suspect]
     Dosage: 0.5 MG, 1X/DAY
     Route: 048
  8. ALAVERT [Concomitant]
     Dosage: UNK, AS NEEDED
  9. ALBUTEROL [Concomitant]
     Dosage: UNK
  10. CHANTIX [Suspect]
     Indication: SMOKING CESSATION THERAPY
     Dosage: UNK
     Route: 048
     Dates: start: 20111221
  11. SALICYLIC ACID [Concomitant]
     Dosage: UNK
  12. PROAIR HFA [Concomitant]
     Dosage: UNK
  13. FLONASE [Concomitant]
     Dosage: UNK
  14. FLOVENT [Concomitant]
     Dosage: UNK
  15. LEXAPRO [Concomitant]
     Indication: DEPRESSION
     Dosage: 20 MG, UNK
  16. NEXIUM [Concomitant]
     Indication: GASTROOESOPHAGEAL REFLUX DISEASE
     Dosage: UNK

REACTIONS (4)
  - NIGHTMARE [None]
  - DEPRESSION [None]
  - ABNORMAL DREAMS [None]
  - INSOMNIA [None]
